FAERS Safety Report 8998555 (Version 1)
Quarter: 2013Q1

REPORT INFORMATION
  Report Type: Spontaneous
  Country: US (occurrence: US)
  Receive Date: 20130103
  Receipt Date: 20130103
  Transmission Date: 20140127
  Serious: No
  Sender: FDA-Public Use
  Company Number: US-ASTRAZENECA-2012SE95468

PATIENT
  Sex: Female

DRUGS (1)
  1. PULMICORT FLEXHALER [Suspect]
     Dosage: TWO INHALATIONS TWICE DAILY
     Route: 055
     Dates: start: 20121110

REACTIONS (2)
  - Chest discomfort [Unknown]
  - Cough [Unknown]
